FAERS Safety Report 21817130 (Version 1)
Quarter: 2023Q1

REPORT INFORMATION
  Report Type: Spontaneous
  Country: AT (occurrence: AT)
  Receive Date: 20230104
  Receipt Date: 20230104
  Transmission Date: 20230417
  Serious: Yes (Other)
  Sender: FDA-Public Use
  Company Number: AT-009507513-2212AUT010465

PATIENT
  Age: 67 Year
  Sex: Female

DRUGS (3)
  1. CARBOPLATIN [Suspect]
     Active Substance: CARBOPLATIN
     Indication: Squamous cell carcinoma of head and neck
     Dosage: UNK, CYCLIC
     Dates: start: 2022, end: 2022
  2. PEMBROLIZUMAB [Suspect]
     Active Substance: PEMBROLIZUMAB
     Indication: Squamous cell carcinoma of head and neck
     Dosage: UNK, CYCLIC
     Dates: start: 2022
  3. FLUOROURACIL [Suspect]
     Active Substance: FLUOROURACIL
     Indication: Squamous cell carcinoma of head and neck
     Dosage: UNK, CYCLIC
     Dates: start: 2022, end: 2022

REACTIONS (6)
  - Osteonecrosis [Unknown]
  - Fistula [Unknown]
  - Neoplasm [Unknown]
  - Positron emission tomogram abnormal [Unknown]
  - Removal of internal fixation [Unknown]
  - Inflammation [Unknown]

NARRATIVE: CASE EVENT DATE: 20220101
